FAERS Safety Report 9637398 (Version 1)
Quarter: 2013Q4

REPORT INFORMATION
  Report Type: Spontaneous
  Country: US (occurrence: US)
  Receive Date: 20131022
  Receipt Date: 20131022
  Transmission Date: 20140711
  Serious: No
  Sender: FDA-Public Use
  Company Number: US-009507513-1310USA001426

PATIENT
  Age: 35 Year
  Sex: Female
  Weight: 95.24 kg

DRUGS (3)
  1. NEXPLANON [Suspect]
     Indication: CONTRACEPTION
     Dosage: ONE ROD EVERY THREE YEARS
     Dates: start: 20130923
  2. SERTRALINE HYDROCHLORIDE [Concomitant]
  3. VERAPAMIL [Concomitant]

REACTIONS (4)
  - Chills [Not Recovered/Not Resolved]
  - Diarrhoea [Not Recovered/Not Resolved]
  - Abdominal pain upper [Not Recovered/Not Resolved]
  - Fatigue [Not Recovered/Not Resolved]
